FAERS Safety Report 6858028-8 (Version None)
Quarter: 2010Q2

REPORT INFORMATION
  Report Type: 
  Country: None (occurrence: None)
  Receive Date: 20100526
  Receipt Date: 20090508
  Transmission Date: 20101027
  Serious: Yes (Other)
  Sender: FDA-Public Use
  Company Number: 287052

PATIENT
  Age: 54 Year
  Sex: Female
  Weight: 71.2 kg

DRUGS (4)
  1. ACTIVELLA [Suspect]
     Indication: HORMONE THERAPY
     Dosage: ORAL
     Route: 048
  2. PREMPRO [Suspect]
     Indication: HORMONE THERAPY
     Dosage: ORAL
     Route: 048
     Dates: start: 20050101, end: 20061130
  3. FEMHRT [Suspect]
     Indication: HORMONE THERAPY
     Dosage: ORAL
     Route: 048
     Dates: start: 20050101, end: 20061130
  4. TRIAMTERENE (TRIAMTERENE) [Concomitant]

REACTIONS (1)
  - BREAST CANCER [None]
